FAERS Safety Report 5092361-8 (Version None)
Quarter: 2006Q3

REPORT INFORMATION
  Report Type: 
  Country: None (occurrence: None)
  Receive Date: 20060825
  Receipt Date: 20060807
  Transmission Date: 20061208
  Serious: Yes (Hospitalization)
  Sender: FDA-Public Use
  Company Number: US200607001072

PATIENT
  Sex: Female
  Weight: 83 kg

DRUGS (2)
  1. ZYPREXA [Suspect]
     Dosage: 10 MG
     Dates: start: 20041001, end: 20051101
  2. DEPAKOTE [Concomitant]

REACTIONS (3)
  - DIABETES MELLITUS [None]
  - INFECTION [None]
  - METABOLIC DISORDER [None]
